FAERS Safety Report 9200898 (Version 2)
Quarter: 2013Q4

REPORT INFORMATION
  Report Type: Spontaneous
  Country: US (occurrence: US)
  Receive Date: 20130401
  Receipt Date: 20131028
  Transmission Date: 20140711
  Serious: Yes (Other)
  Sender: FDA-Public Use
  Company Number: US-BAYER-2013-039095

PATIENT
  Age: 37 Year
  Sex: Female
  Weight: 56.69 kg

DRUGS (8)
  1. MIRENA [Suspect]
     Indication: CONTRACEPTION
     Dosage: 20 MCG/24HR, CONT
     Route: 015
     Dates: start: 200412, end: 200510
  2. MIRENA [Suspect]
     Indication: CONTRACEPTION
     Dosage: 20 MCG/24HR, CONT
     Route: 015
     Dates: start: 20061128, end: 20070228
  3. LEXAPRO [Concomitant]
     Dosage: UNK
  4. IBUPROFEN [Concomitant]
     Dosage: 500 MG, UNK
  5. ATIVAN [Concomitant]
     Dosage: UNK
  6. KEFLEX [Concomitant]
     Dosage: UNK
  7. CIPRO [Concomitant]
     Dosage: UNK
  8. MOTRIN [Concomitant]
     Dosage: UNK

REACTIONS (9)
  - Uterine perforation [None]
  - Abdominal pain [None]
  - Injury [None]
  - Abdominal pain [None]
  - Device expulsion [None]
  - Emotional distress [None]
  - Post-traumatic stress disorder [None]
  - Mental disorder [None]
  - General physical health deterioration [None]
